FAERS Safety Report 4456237-9 (Version None)
Quarter: 2004Q3

REPORT INFORMATION
  Report Type: 
  Country: None (occurrence: None)
  Receive Date: 20040920
  Receipt Date: 20040908
  Transmission Date: 20050211
  Serious: No
  Sender: FDA-Public Use
  Company Number: 2004AP04395

PATIENT
  Age: 36 Year
  Sex: Male

DRUGS (4)
  1. OMEPRAL [Suspect]
     Indication: GASTROOESOPHAGEAL REFLUX DISEASE
     Dosage: 20 MG DAILY PO
     Route: 048
     Dates: start: 20040728
  2. MINOCYCLINE HYDROCHLORIDE [Suspect]
     Indication: OTITIS MEDIA
     Dosage: 200 MG DAILY PO
     Route: 048
     Dates: start: 20040819, end: 20040819
  3. DASEN [Suspect]
     Indication: PHARYNGITIS
     Dosage: 30 MG DAILY PO
     Route: 048
     Dates: start: 20040728, end: 20040824
  4. DASEN [Suspect]
     Indication: SINUSITIS
     Dosage: 30 MG DAILY PO
     Route: 048
     Dates: start: 20040728, end: 20040824

REACTIONS (13)
  - ABDOMINAL PAIN UPPER [None]
  - AURICULAR SWELLING [None]
  - BLOOD PRESSURE INCREASED [None]
  - CHILLS [None]
  - DYSPEPSIA [None]
  - DYSPNOEA [None]
  - EAR PAIN [None]
  - FEELING COLD [None]
  - HEADACHE [None]
  - HYPOAESTHESIA [None]
  - OXYGEN SATURATION DECREASED [None]
  - PALLOR [None]
  - PYREXIA [None]
